FAERS Safety Report 23913387 (Version 1)
Quarter: 2024Q2

REPORT INFORMATION
  Report Type: Spontaneous
  Country: CA (occurrence: CA)
  Receive Date: 20240529
  Receipt Date: 20240529
  Transmission Date: 20240716
  Serious: Yes (Other)
  Sender: FDA-Public Use
  Company Number: CA-002147023-NVSC2024CA109345

PATIENT
  Sex: Male

DRUGS (1)
  1. LUTATHERA [Suspect]
     Active Substance: LUTETIUM OXODOTREOTIDE LU-177
     Indication: Neuroendocrine tumour of the rectum
     Dosage: UNK (4 INFUSION COMPLETED)
     Route: 065
     Dates: end: 202002

REACTIONS (3)
  - Malignant neoplasm progression [Unknown]
  - Neuroendocrine tumour of the rectum [Unknown]
  - Off label use [Unknown]
